FAERS Safety Report 7499717-4 (Version None)
Quarter: 2011Q2

REPORT INFORMATION
  Report Type: 
  Country: None (occurrence: None)
  Receive Date: 20110524
  Receipt Date: 20110516
  Transmission Date: 20111010
  Serious: Yes (Death, Hospitalization)
  Sender: FDA-Public Use
  Company Number: IN-ROCHE-777282

PATIENT
  Age: 56 Year
  Sex: Male

DRUGS (3)
  1. BEVACIZUMAB [Suspect]
     Dosage: A SINGLE INJECTION
     Route: 031
  2. ALLOPURINOL [Suspect]
     Route: 065
  3. DICLOFENAC SODIUM [Concomitant]
     Indication: GOUT

REACTIONS (1)
  - TOXIC EPIDERMAL NECROLYSIS [None]
